FAERS Safety Report 16260088 (Version 4)
Quarter: 2019Q3

REPORT INFORMATION
  Report Type: Spontaneous
  Country: US (occurrence: US)
  Receive Date: 20190501
  Receipt Date: 20190826
  Transmission Date: 20191004
  Serious: No
  Sender: FDA-Public Use
  Company Number: US-SHIRE-US201914225

PATIENT
  Sex: Female
  Weight: 52.15 kg

DRUGS (3)
  1. XIIDRA [Suspect]
     Active Substance: LIFITEGRAST
     Indication: DRY EYE
     Dosage: 1 GTT DROPS, 1X/DAY:QD
     Route: 047
     Dates: start: 201811
  2. RESTASIS [Concomitant]
     Active Substance: CYCLOSPORINE
     Indication: PRODUCT USED FOR UNKNOWN INDICATION
  3. XIIDRA [Suspect]
     Active Substance: LIFITEGRAST
     Indication: EYE PRURITUS
     Dosage: UNK UNK, 1X/DAY:QD
     Route: 047
     Dates: start: 201901, end: 2019

REACTIONS (14)
  - Ocular hyperaemia [Recovering/Resolving]
  - Instillation site pruritus [Recovering/Resolving]
  - Instillation site exfoliation [Unknown]
  - Eye injury [Unknown]
  - Condition aggravated [Recovering/Resolving]
  - Eye swelling [Recovering/Resolving]
  - Instillation site irritation [Unknown]
  - Eyelid exfoliation [Recovering/Resolving]
  - Eye pruritus [Recovering/Resolving]
  - Off label use [Recovered/Resolved]
  - Photophobia [Recovering/Resolving]
  - Instillation site paraesthesia [Unknown]
  - Instillation site erythema [Unknown]
  - Instillation site hypersensitivity [Recovering/Resolving]

NARRATIVE: CASE EVENT DATE: 2019
